FAERS Safety Report 26109101 (Version 1)
Quarter: 2025Q4

REPORT INFORMATION
  Report Type: Spontaneous
  Country: BR (occurrence: BR)
  Receive Date: 20251201
  Receipt Date: 20251201
  Transmission Date: 20260118
  Serious: Yes (Hospitalization)
  Sender: NOVO NORDISK
  Company Number: BR-NOVOPROD-1570848

PATIENT
  Sex: Female

DRUGS (4)
  1. RYBELSUS [Suspect]
     Active Substance: SEMAGLUTIDE
     Indication: Weight control
     Dosage: 7MG
     Dates: start: 202506
  2. RYBELSUS [Suspect]
     Active Substance: SEMAGLUTIDE
     Indication: Perinatal depression
  3. RYBELSUS [Suspect]
     Active Substance: SEMAGLUTIDE
     Indication: Weight control
     Dosage: 3MG
     Dates: start: 202506
  4. RYBELSUS [Suspect]
     Active Substance: SEMAGLUTIDE
     Indication: Perinatal depression

REACTIONS (4)
  - Gastric infection [Unknown]
  - Vomiting [Unknown]
  - Diarrhoea [Unknown]
  - Off label use [Unknown]

NARRATIVE: CASE EVENT DATE: 20250101
